FAERS Safety Report 21410211 (Version 2)
Quarter: 2022Q4

REPORT INFORMATION
  Report Type: Spontaneous
  Country: US (occurrence: US)
  Receive Date: 20221005
  Receipt Date: 20221207
  Transmission Date: 20230113
  Serious: No
  Sender: FDA-Public Use
  Company Number: US-ALLERGAN-2224667US

PATIENT
  Sex: Female
  Weight: 56.699 kg

DRUGS (4)
  1. LO LOESTRIN FE [Suspect]
     Active Substance: ETHINYL ESTRADIOL\NORETHINDRONE ACETATE
     Indication: Contraception
     Dosage: 1 DF, QD
     Route: 048
     Dates: start: 2019, end: 20220726
  2. LO LOESTRIN FE [Suspect]
     Active Substance: ETHINYL ESTRADIOL\NORETHINDRONE ACETATE
     Indication: Heavy menstrual bleeding
     Dosage: UNK
  3. UBRELVY [Interacting]
     Active Substance: UBROGEPANT
     Indication: Migraine
     Dosage: UNK
  4. COVID-19 VACCINE [Concomitant]
     Indication: COVID-19 immunisation
     Dosage: UNK, SINGLE
     Route: 030

REACTIONS (12)
  - Condition aggravated [Unknown]
  - Feeling jittery [Not Recovered/Not Resolved]
  - Alopecia [Not Recovered/Not Resolved]
  - Drug interaction [Unknown]
  - Off label use [Unknown]
  - Fatigue [Not Recovered/Not Resolved]
  - Anxiety [Not Recovered/Not Resolved]
  - Vomiting [Not Recovered/Not Resolved]
  - Amenorrhoea [Unknown]
  - Headache [Not Recovered/Not Resolved]
  - Nausea [Not Recovered/Not Resolved]
  - Migraine [Not Recovered/Not Resolved]
